APPROVED DRUG PRODUCT: LUPRON
Active Ingredient: LEUPROLIDE ACETATE
Strength: 14MG/2.8ML (1MG/0.2ML) **Federal Register determination that product was not discontinued or withdrawn for safety or effectiveness reasons**
Dosage Form/Route: SOLUTION;SUBCUTANEOUS
Application: N019010 | Product #001
Applicant: ABBVIE ENDOCRINE INC
Approved: Apr 9, 1985 | RLD: Yes | RS: No | Type: DISCN